FAERS Safety Report 20358314 (Version 1)
Quarter: 2022Q1

REPORT INFORMATION
  Report Type: Spontaneous
  Country: US (occurrence: US)
  Receive Date: 20220120
  Receipt Date: 20220120
  Transmission Date: 20220423
  Serious: No
  Sender: FDA-Public Use
  Company Number: US-NOVOPROD-873282

PATIENT
  Sex: Male
  Weight: 120.65 kg

DRUGS (2)
  1. OZEMPIC [Suspect]
     Active Substance: SEMAGLUTIDE
     Indication: Product used for unknown indication
     Dosage: STARTED 6-7 MONTHS AGO
     Route: 058
  2. NOVOLOG MIX 70/30 [Concomitant]
     Active Substance: INSULIN ASPART
     Indication: Product used for unknown indication
     Dosage: MISTAKENLY DID NOT ASK DOSAGE, STARTED ^A COUPLE YEARS AGO^
     Route: 058

REACTIONS (1)
  - Weight decreased [Not Recovered/Not Resolved]
